FAERS Safety Report 6397528-4 (Version None)
Quarter: 2009Q4

REPORT INFORMATION
  Report Type: 
  Country: None (occurrence: None)
  Receive Date: 20091012
  Receipt Date: 20091005
  Transmission Date: 20100525
  Serious: Yes (Other)
  Sender: FDA-Public Use
  Company Number: US-BAYER-200934706GPV

PATIENT
  Age: 71 Year
  Sex: Male

DRUGS (9)
  1. ASPIRIN [Suspect]
     Indication: DRUG USE FOR UNKNOWN INDICATION
     Route: 048
  2. DAPAGLIFLOZIN OR PLACEBO [Suspect]
     Indication: TYPE 2 DIABETES MELLITUS
     Route: 048
     Dates: start: 20081031
  3. GLUCOPHAGE [Suspect]
     Indication: TYPE 2 DIABETES MELLITUS
     Route: 048
     Dates: start: 20080822
  4. GLIPIZIDE OR PLACEBO [Suspect]
     Indication: TYPE 2 DIABETES MELLITUS
     Route: 048
     Dates: start: 20081031
  5. METFORMIN HYDROCHLORIDE [Concomitant]
     Dates: end: 20080821
  6. GLIBENCLAMIDE [Concomitant]
     Dates: end: 20080821
  7. LOSARTAN POSTASSIUM [Concomitant]
     Dates: start: 20090127
  8. HYDROCHLOROTHIAZIDE [Concomitant]
     Dates: start: 20090626
  9. SIMVASTATIN [Concomitant]
     Dates: start: 20090626

REACTIONS (3)
  - CHEST PAIN [None]
  - FAECES DISCOLOURED [None]
  - HAEMORRHAGIC ANAEMIA [None]
